FAERS Safety Report 7206093-0 (Version None)
Quarter: 2010Q4

REPORT INFORMATION
  Report Type: 
  Country: None (occurrence: None)
  Receive Date: 20101228
  Receipt Date: 20101228
  Transmission Date: 20110411
  Serious: Yes (Life-Threatening, Hospitalization, Disabling, Other)
  Sender: FDA-Public Use
  Company Number: None

PATIENT
  Age: 38 Year
  Sex: Female
  Weight: 108.8633 kg

DRUGS (2)
  1. HUMIRA [Suspect]
     Indication: PSORIASIS
     Dosage: 40 MG SHOT WEEKLY CUTANEOUS
     Route: 003
     Dates: start: 19970901, end: 20100320
  2. HUMIRA [Suspect]
     Indication: PSORIATIC ARTHROPATHY
     Dosage: 40 MG SHOT WEEKLY CUTANEOUS
     Route: 003
     Dates: start: 19970901, end: 20100320

REACTIONS (9)
  - AMNESIA [None]
  - BALANCE DISORDER [None]
  - COGNITIVE DISORDER [None]
  - DIZZINESS [None]
  - FATIGUE [None]
  - HYPOAESTHESIA [None]
  - MULTIPLE SCLEROSIS [None]
  - NERVOUS SYSTEM DISORDER [None]
  - TREMOR [None]
